FAERS Safety Report 9309420 (Version 3)
Quarter: 2014Q2

REPORT INFORMATION
  Report Type: Spontaneous
  Country: US (occurrence: US)
  Receive Date: 20130525
  Receipt Date: 20140510
  Transmission Date: 20141212
  Serious: No
  Sender: FDA-Public Use
  Company Number: US-BRISTOL-MYERS SQUIBB COMPANY-18708073

PATIENT
  Age: 60 Year
  Sex: Female

DRUGS (11)
  1. BYDUREON [Suspect]
     Indication: DIABETES MELLITUS
     Route: 058
     Dates: start: 20130312, end: 20130830
  2. LOSARTAN POTASSIUM + HCTZ [Concomitant]
     Indication: DIABETES MELLITUS
     Dosage: 50-12.5 MG ?1DF:1 TAB
     Route: 048
     Dates: start: 20091211
  3. LOSARTAN POTASSIUM + HCTZ [Concomitant]
     Indication: ESSENTIAL HYPERTENSION
     Dosage: 50-12.5 MG ?1DF:1 TAB
     Route: 048
     Dates: start: 20091211
  4. LOVASTATIN [Concomitant]
     Indication: HYPERCHOLESTEROLAEMIA
     Dosage: TAB
     Route: 048
     Dates: start: 20091215
  5. LOVASTATIN [Concomitant]
     Indication: ESSENTIAL HYPERTENSION
     Dosage: TAB
     Route: 048
     Dates: start: 20091215
  6. SERTRALINE [Concomitant]
     Indication: DEPRESSION
     Dosage: 100 MG ?1 DF-1 1/2 TAB DAILY
     Route: 048
     Dates: start: 20091013
  7. TRAZODONE HCL [Concomitant]
     Indication: DEPRESSION
     Dosage: 50 MG TAB?1-1 1/2 AS NEEDED
     Route: 048
     Dates: start: 20130830
  8. TRAZODONE HCL [Concomitant]
     Indication: INSOMNIA
     Dosage: 50 MG TAB?1-1 1/2 AS NEEDED
     Route: 048
     Dates: start: 20130830
  9. BYETTA PEN DISPOSABLE [Concomitant]
     Indication: DIABETES MELLITUS
     Dosage: 10 MCG/0.04 ML
     Route: 058
  10. CO-Q-10 PLUS [Concomitant]
     Indication: HYPERCHOLESTEROLAEMIA
  11. LEVOTHYROXINE SODIUM [Concomitant]
     Indication: HYPOTHYROIDISM
     Dosage: TAB
     Route: 048
     Dates: start: 20091211

REACTIONS (3)
  - Blood glucose increased [Not Recovered/Not Resolved]
  - Injection site mass [Not Recovered/Not Resolved]
  - Weight increased [Unknown]
